FAERS Safety Report 21965240 (Version 1)
Quarter: 2023Q1

REPORT INFORMATION
  Report Type: Spontaneous
  Country: US (occurrence: US)
  Receive Date: 20230208
  Receipt Date: 20230208
  Transmission Date: 20230417
  Serious: No
  Sender: FDA-Public Use
  Company Number: US-BIOCON RESEARCH LIMITED-BCN-2022-001308

PATIENT
  Age: 38 Year
  Sex: Male
  Weight: 79.38 kg

DRUGS (10)
  1. EVEROLIMUS [Suspect]
     Active Substance: EVEROLIMUS
     Indication: Seizure
     Dosage: STARTED USING CONCERNED PACKAGE OF MEDICATION FROM 20-NOV-2022
  2. HYDROCHLOROTHIAZIDE [Concomitant]
     Active Substance: HYDROCHLOROTHIAZIDE
     Indication: Product used for unknown indication
     Dosage: RENEWED IN FEBRUARY-2022.
  3. VITAMIN D3 [Concomitant]
     Active Substance: CHOLECALCIFEROL
     Indication: Product used for unknown indication
     Dosage: RENEWED IN FEBRUARY-2022.
  4. DIVALPROEX SODIUM [Concomitant]
     Active Substance: DIVALPROEX SODIUM
     Indication: Product used for unknown indication
     Dosage: 03 TABLETS AT 7 AM, 02 TABLETS AT NOON AND 03 TABLETS AT NIGHT 8 PM. RENEWED IN FEBRUARY-2022.
  5. LACOSAMIDE [Concomitant]
     Active Substance: LACOSAMIDE
     Indication: Product used for unknown indication
     Dosage: AT NOON. RENEWED IN FEBRUARY-2022.
  6. LACOSAMIDE [Concomitant]
     Active Substance: LACOSAMIDE
     Dosage: RENEWED IN FEBRUARY-2022.
  7. ACETAMINOPHEN [Concomitant]
     Active Substance: ACETAMINOPHEN
     Indication: Product used for unknown indication
     Dosage: RENEWED IN FEBRUARY-2022.
  8. CETIRIZINE [Concomitant]
     Active Substance: CETIRIZINE HYDROCHLORIDE
     Indication: Product used for unknown indication
     Dosage: RENEWED IN FEBRUARY-2022.
  9. Lil Critters [Concomitant]
     Indication: Product used for unknown indication
     Dosage: GUMMY VITAMINS. RENEWED IN FEBRUARY-2022.
  10. MELATONIN [Concomitant]
     Active Substance: MELATONIN
     Indication: Product used for unknown indication
     Dosage: RENEWED IN FEBRUARY-2022.

REACTIONS (4)
  - Accidental exposure to product packaging [Unknown]
  - Product dose omission issue [Unknown]
  - Product use in unapproved indication [Unknown]
  - No adverse event [Unknown]
